FAERS Safety Report 5514251-6 (Version None)
Quarter: 2007Q4

REPORT INFORMATION
  Report Type: 
  Country: None (occurrence: None)
  Receive Date: 20071031
  Receipt Date: 20070323
  Transmission Date: 20080405
  Serious: Yes (Other)
  Sender: FDA-Public Use
  Company Number: US019699

PATIENT
  Sex: Male
  Weight: 76.4 kg

DRUGS (2)
  1. PROVIGIL [Suspect]
     Indication: NARCOLEPSY
     Dosage: 200 MG QAM ORAL
     Route: 048
     Dates: start: 20070312
  2. ONE-A-DAY MEN'S [Concomitant]

REACTIONS (2)
  - ASTHMA [None]
  - DYSPNOEA [None]
